FAERS Safety Report 20050119 (Version 17)
Quarter: 2022Q2

REPORT INFORMATION
  Report Type: Report from Study
  Country: NO (occurrence: None)
  Receive Date: 20211109
  Receipt Date: 20220516
  Transmission Date: 20220721
  Serious: Yes (Other)
  Sender: FDA-Public Use
  Company Number: NO-Eisai Medical Research-EC-2021-102609

PATIENT
  Age: 70 Year
  Sex: Male
  Weight: 76.3 kg

DRUGS (13)
  1. LENVATINIB [Suspect]
     Active Substance: LENVATINIB
     Indication: Clear cell renal cell carcinoma
     Dosage: STARTING DOSE AT 20 MG, FLUCTUATED DOSAGE
     Route: 048
     Dates: start: 20210608, end: 20211012
  2. LENVATINIB [Suspect]
     Active Substance: LENVATINIB
     Route: 048
     Dates: start: 20211013, end: 20211102
  3. LENVATINIB [Suspect]
     Active Substance: LENVATINIB
     Route: 048
     Dates: start: 20211130
  4. QUAVONLIMAB [Suspect]
     Active Substance: QUAVONLIMAB
     Indication: Clear cell renal cell carcinoma
     Dosage: 425 MG MK-1308A CONTAINS 25MG MK-1308 AND 400 MG PEMBROLIZUMAB
     Route: 041
     Dates: start: 20210608, end: 20210831
  5. PEMBROLIZUMAB [Suspect]
     Active Substance: PEMBROLIZUMAB
     Dosage: 425 MG MK-1308A CONTAINS 25MG MK-1308 AND 400 MG PEMBROLIZUMAB
     Route: 041
     Dates: start: 20211012, end: 20211012
  6. LIVOSTIN [Concomitant]
     Active Substance: LEVOCABASTINE HYDROCHLORIDE
     Dates: start: 202011
  7. NASONEX [Concomitant]
     Active Substance: MOMETASONE FUROATE
     Dates: start: 202011
  8. ACETAMINOPHEN [Concomitant]
     Active Substance: ACETAMINOPHEN
     Dates: start: 20210416
  9. ZYRTEC [Concomitant]
     Active Substance: CETIRIZINE HYDROCHLORIDE
     Dates: start: 20210515
  10. PREDNISOLONE [Concomitant]
     Active Substance: PREDNISOLONE
     Dates: start: 20210114, end: 20220121
  11. ELIQUIS [Concomitant]
     Active Substance: APIXABAN
     Dates: start: 20210525
  12. URIZIA [Concomitant]
     Dates: start: 20210615
  13. PREDNISOLONE [Concomitant]
     Active Substance: PREDNISOLONE
     Dates: start: 20210515

REACTIONS (1)
  - Enteritis [Not Recovered/Not Resolved]

NARRATIVE: CASE EVENT DATE: 20211022
